FAERS Safety Report 16959842 (Version 2)
Quarter: 2019Q4

REPORT INFORMATION
  Report Type: Report from Study
  Country: GB (occurrence: GB)
  Receive Date: 20191025
  Receipt Date: 20191029
  Transmission Date: 20200122
  Serious: Yes (Other)
  Sender: FDA-Public Use
  Company Number: GB-BIOGEN-2019BI00714802

PATIENT
  Age: 43 Year
  Sex: Female

DRUGS (2)
  1. PLEGRIDY [Suspect]
     Active Substance: PEGINTERFERON BETA-1A
     Indication: RELAPSING-REMITTING MULTIPLE SCLEROSIS
     Dosage: INITIATION
     Route: 058
     Dates: start: 20190305
  2. PLEGRIDY [Suspect]
     Active Substance: PEGINTERFERON BETA-1A
     Indication: RELAPSING-REMITTING MULTIPLE SCLEROSIS
     Route: 058
     Dates: start: 20190305, end: 20191010

REACTIONS (8)
  - Urinary tract infection [Not Recovered/Not Resolved]
  - Chills [Recovered/Resolved]
  - Injection site pain [Recovered/Resolved]
  - Influenza like illness [Recovered/Resolved]
  - Pyrexia [Recovered/Resolved]
  - White blood cell count abnormal [Not Recovered/Not Resolved]
  - Neutrophil count abnormal [Not Recovered/Not Resolved]
  - Lymphocyte count abnormal [Recovered/Resolved]

NARRATIVE: CASE EVENT DATE: 20190305
